FAERS Safety Report 9144779 (Version 2)
Quarter: 2013Q2

REPORT INFORMATION
  Report Type: Spontaneous
  Country: JP (occurrence: JP)
  Receive Date: 20130306
  Receipt Date: 20130408
  Transmission Date: 20140414
  Serious: Yes (Death)
  Sender: FDA-Public Use
  Company Number: JP-BRISTOL-MYERS SQUIBB COMPANY-17439258

PATIENT
  Age: 61 Year
  Sex: Female
  Weight: 43 kg

DRUGS (6)
  1. ERBITUX SOLN FOR INF 5MG/ML [Suspect]
     Indication: NASOPHARYNGEAL CANCER
     Dosage: 17-17JAN13-554MG?24JAN-21FEB13-28D-346MG 1IN1WK-5TIMES
     Route: 041
     Dates: start: 20130117, end: 20130221
  2. PACLITAXEL [Suspect]
     Indication: NASOPHARYNGEAL CANCER
     Dosage: 6 TIMES
     Route: 041
     Dates: start: 20130117, end: 20130221
  3. PARAPLATIN [Suspect]
     Indication: NASOPHARYNGEAL CANCER
     Dosage: 2 TIMES
     Route: 041
     Dates: start: 20130117, end: 20130207
  4. DEXART [Concomitant]
     Dosage: IV ALSO
     Route: 041
     Dates: start: 20130117, end: 20130221
  5. POLARAMIN [Concomitant]
     Dosage: 6 TIMES
     Route: 041
     Dates: start: 20130117, end: 20130221
  6. GASTER [Concomitant]
     Dosage: 6 TIMES
     Dates: start: 20130117, end: 20130221

REACTIONS (2)
  - Cardio-respiratory arrest [Fatal]
  - Sudden death [None]
